FAERS Safety Report 21670956 (Version 3)
Quarter: 2023Q1

REPORT INFORMATION
  Report Type: Spontaneous
  Country: US (occurrence: US)
  Receive Date: 20221202
  Receipt Date: 20230216
  Transmission Date: 20230418
  Serious: No
  Sender: FDA-Public Use
  Company Number: US-GBT-017126

PATIENT
  Age: 15 Year
  Sex: Male

DRUGS (1)
  1. OXBRYTA [Suspect]
     Active Substance: VOXELOTOR
     Indication: Sickle cell disease
     Route: 048
     Dates: start: 20220830

REACTIONS (3)
  - Dizziness [Recovered/Resolved]
  - Product use complaint [Unknown]
  - Fatigue [Unknown]

NARRATIVE: CASE EVENT DATE: 20221004
